FAERS Safety Report 15956520 (Version 1)
Quarter: 2019Q1

REPORT INFORMATION
  Report Type: Spontaneous
  Country: IT (occurrence: IT)
  Receive Date: 20190213
  Receipt Date: 20190213
  Transmission Date: 20190417
  Serious: Yes (Hospitalization)
  Sender: FDA-Public Use
  Company Number: IT-TEVA-2019-IT-1009987

PATIENT
  Age: 86 Year
  Sex: Female
  Weight: 78 kg

DRUGS (16)
  1. AMBROXOL TECNIGEN 15 MG/2 ML SOLUZIONE DA NEBULIZZARE [Concomitant]
     Indication: RESPIRATORY DISORDER
     Route: 055
     Dates: start: 20190105, end: 20190121
  2. BRONCOVALEAS 5MG/ML SOLUZIONE DA NEBULIZZARE [Concomitant]
     Indication: BRONCHOSPASM
     Route: 055
     Dates: start: 20190105, end: 20190121
  3. IPRAXA [Concomitant]
     Indication: BRONCHOSPASM
     Dosage: 250 MICROGRAM DAILY;
     Route: 055
  4. MONTELUKAST TORRENT [Concomitant]
     Indication: ASTHMA
     Route: 048
     Dates: start: 20181220, end: 20190121
  5. FORMODUAL 100 MICROGRAMMI/6 MICROGRAMMI POLVERE PER INALAZIONE [Concomitant]
     Indication: ASTHMA
     Route: 055
     Dates: start: 20190104, end: 20190121
  6. ASPIRIN. [Concomitant]
     Active Substance: ASPIRIN
     Indication: ANGINA PECTORIS
     Route: 048
     Dates: start: 20181220, end: 20190121
  7. CANDESARTAN EG 8 MG COMPRESSE [Concomitant]
     Indication: ESSENTIAL HYPERTENSION
     Route: 048
     Dates: start: 20181220, end: 20190121
  8. MEDROL 16 MG COMPRESSE [Concomitant]
     Indication: ENDOCRINE DISORDER
     Route: 048
     Dates: start: 20190111, end: 20190121
  9. TALOFEN [Suspect]
     Active Substance: PROMAZINE HYDROCHLORIDE
     Indication: PSYCHOTIC DISORDER
     Route: 048
     Dates: start: 20181224, end: 20190121
  10. SERTRALINA MYLAN GENERICS 50 MG COMPRESSE RIVESTITE CON FILM [Concomitant]
     Active Substance: SERTRALINE HYDROCHLORIDE
     Indication: DEPRESSION
     Route: 048
     Dates: start: 20181220, end: 20190121
  11. FUROSEMIDE. [Suspect]
     Active Substance: FUROSEMIDE
     Indication: OEDEMA
     Route: 048
     Dates: start: 20181220, end: 20190121
  12. CRESTOR 10 MG COMPRESSE RIVESTITE CON FILM. [Concomitant]
     Indication: HYPERCHOLESTEROLAEMIA
     Route: 048
     Dates: start: 20181220, end: 20190121
  13. RANEXA 500 MG PROLONGED-RELEASE TABLETS [Concomitant]
     Indication: ANGINA PECTORIS
     Route: 048
     Dates: start: 20181220, end: 20190121
  14. COLECALCIFEROLO EG 10.000 U.I. /ML GOCCE ORALI, SOLUZIONE [Concomitant]
     Indication: VITAMIN D DEFICIENCY
     Route: 048
     Dates: start: 20181220, end: 20190121
  15. CLENIL? 100 MICROGRAMMI POLVERE PER INALAZIONE [Concomitant]
     Indication: ASTHMA
     Route: 055
     Dates: start: 20190105, end: 20190121
  16. PANTOPRAZOLO DOC GENERICI 20 MG COMPRESSE GASTRORESISTENTI [Concomitant]
     Indication: GASTROOESOPHAGEAL REFLUX DISEASE
     Route: 048
     Dates: start: 20181220, end: 20190121

REACTIONS (1)
  - Balance disorder [Unknown]

NARRATIVE: CASE EVENT DATE: 20190111
